FAERS Safety Report 8280546-9 (Version None)
Quarter: 2012Q2

REPORT INFORMATION
  Report Type: 
  Country: None (occurrence: None)
  Receive Date: 20120412
  Receipt Date: 20111012
  Transmission Date: 20120825
  Serious: No
  Sender: FDA-Public Use
  Company Number: US-ASTRAZENECA-2011SE61383

PATIENT
  Age: 63 Year
  Weight: 81.6 kg

DRUGS (3)
  1. HIGH CHOLESTEROL MEDICATION [Concomitant]
  2. HIGH BLOOD PRESSURE MEDICATION [Concomitant]
  3. NEXIUM [Suspect]
     Indication: GASTROOESOPHAGEAL REFLUX DISEASE
     Route: 048

REACTIONS (1)
  - OSTEOPENIA [None]
